FAERS Safety Report 7210265-9 (Version None)
Quarter: 2010Q4

REPORT INFORMATION
  Report Type: 
  Country: None (occurrence: None)
  Receive Date: 20101223
  Receipt Date: 20101209
  Transmission Date: 20110411
  Serious: Yes (Other)
  Sender: FDA-Public Use
  Company Number: 2010P1003193

PATIENT
  Age: 6 Year
  Sex: Female
  Weight: 19.5047 kg

DRUGS (1)
  1. OVIDE [Suspect]
     Indication: LICE INFESTATION
     Dosage: 0.5 %; X1; TOP
     Route: 061
     Dates: start: 20101205, end: 20101205

REACTIONS (1)
  - BURNS SECOND DEGREE [None]
